FAERS Safety Report 6792675-7 (Version None)
Quarter: 2010Q2

REPORT INFORMATION
  Report Type: 
  Country: None (occurrence: None)
  Receive Date: 20100624
  Receipt Date: 20080922
  Transmission Date: 20101027
  Serious: No
  Sender: FDA-Public Use
  Company Number: US-PFIZER INC-2008072684

PATIENT
  Age: 40 Year
  Sex: Female

DRUGS (2)
  1. GEODON [Suspect]
     Indication: BIPOLAR I DISORDER
     Route: 048
     Dates: start: 20080801
  2. CLONAZEPAM [Concomitant]

REACTIONS (3)
  - FATIGUE [None]
  - OBESITY [None]
  - SEDATION [None]
